FAERS Safety Report 19227756 (Version 1)
Quarter: 2021Q2

REPORT INFORMATION
  Report Type: Spontaneous
  Country: US (occurrence: US)
  Receive Date: 20210506
  Receipt Date: 20210506
  Transmission Date: 20210717
  Serious: No
  Sender: FDA-Public Use
  Company Number: US-ROCHE-2703459

PATIENT
  Sex: Male

DRUGS (8)
  1. ISOSORBIDE MONONITRATE. [Concomitant]
     Active Substance: ISOSORBIDE MONONITRATE
  2. IBUPROFEN. [Concomitant]
     Active Substance: IBUPROFEN
  3. NITROSTAT [Concomitant]
     Active Substance: NITROGLYCERIN
  4. ENTRESTO [Concomitant]
     Active Substance: SACUBITRIL\VALSARTAN
     Dosage: 24?26 MG TABLET
  5. PEPCID [Concomitant]
     Active Substance: FAMOTIDINE
  6. METOPROLOL SUCCINATE. [Concomitant]
     Active Substance: METOPROLOL SUCCINATE
  7. ESBRIET [Suspect]
     Active Substance: PIRFENIDONE
     Indication: PULMONARY FIBROSIS
     Dosage: TAKE 2 CAPSULES BY MOUTH THREE TIMES A DAY WITH MEALS
     Route: 048
  8. FUROSEMIDE. [Concomitant]
     Active Substance: FUROSEMIDE

REACTIONS (1)
  - Nausea [Unknown]
